FAERS Safety Report 6050425-6 (Version None)
Quarter: 2009Q1

REPORT INFORMATION
  Report Type: 
  Country: None (occurrence: None)
  Receive Date: 20090121
  Receipt Date: 20090107
  Transmission Date: 20090719
  Serious: Yes (Death)
  Sender: FDA-Public Use
  Company Number: 141256

PATIENT
  Age: 44 Year
  Sex: Female
  Weight: 65.318 kg

DRUGS (2)
  1. AMIDATE [Suspect]
     Dosage: 40 MG
  2. SODIUM CHLORIDE [Concomitant]

REACTIONS (5)
  - ALCOHOL POISONING [None]
  - COMPLETED SUICIDE [None]
  - LOSS OF CONSCIOUSNESS [None]
  - POISONING [None]
  - SUICIDAL IDEATION [None]
